FAERS Safety Report 19431116 (Version 4)
Quarter: 2021Q3

REPORT INFORMATION
  Report Type: Report from Study
  Country: US (occurrence: US)
  Receive Date: 20210618
  Receipt Date: 20210929
  Transmission Date: 20211014
  Serious: No
  Sender: FDA-Public Use
  Company Number: NVSC2021US137008

PATIENT
  Sex: Female

DRUGS (1)
  1. COSENTYX [Suspect]
     Active Substance: SECUKINUMAB
     Indication: PSORIASIS
     Dosage: 300 MG, QW
     Route: 058

REACTIONS (6)
  - Injection site bruising [Unknown]
  - Allergy to arthropod sting [Unknown]
  - Skin discolouration [Unknown]
  - Drug ineffective [Unknown]
  - Hordeolum [Unknown]
  - Pruritus [Unknown]
